FAERS Safety Report 5642910-3 (Version None)
Quarter: 2008Q1

REPORT INFORMATION
  Report Type: 
  Country: None (occurrence: None)
  Receive Date: 20080228
  Receipt Date: 20080220
  Transmission Date: 20080703
  Serious: Yes (Hospitalization, Other)
  Sender: FDA-Public Use
  Company Number: US-ROCHE-524992

PATIENT
  Age: 77 Year
  Sex: Female
  Weight: 49.9 kg

DRUGS (5)
  1. BUMEX [Suspect]
     Route: 048
     Dates: start: 19910101, end: 19910101
  2. BUMEX [Suspect]
     Dosage: DOSE: ONE HALF OF A 1 MG TABLET
     Route: 048
     Dates: start: 19910101, end: 20070929
  3. BUMETANIDE [Suspect]
     Route: 048
     Dates: start: 20070929, end: 20080214
  4. BUMETANIDE [Suspect]
     Route: 065
     Dates: start: 20080215
  5. SYNTHROID [Concomitant]
     Indication: HYPOTHYROIDISM

REACTIONS (10)
  - ARTHRALGIA [None]
  - ASTHENIA [None]
  - CARDIAC FAILURE CONGESTIVE [None]
  - CHILLS [None]
  - DIZZINESS [None]
  - DYSPNOEA [None]
  - GAIT DISTURBANCE [None]
  - MYOCARDIAL INFARCTION [None]
  - STOMACH DISCOMFORT [None]
  - TEMPORAL ARTERITIS [None]
